FAERS Safety Report 22265856 (Version 2)
Quarter: 2023Q2

REPORT INFORMATION
  Report Type: Spontaneous
  Country: US (occurrence: US)
  Receive Date: 20230428
  Receipt Date: 20230428
  Transmission Date: 20230722
  Serious: No
  Sender: FDA-Public Use
  Company Number: US-TEVA-2023-US-2876164

PATIENT
  Age: 61 Year
  Sex: Female

DRUGS (2)
  1. CLONAZEPAM [Suspect]
     Active Substance: CLONAZEPAM
     Indication: Panic attack
     Dosage: ROUND, YELLOW, TABLET WITH AN IMPRINT CODE OF TEVA/832.?ONE TABLET IN THE MORNING AND ONE AT NIGHT
     Route: 048
  2. CLONAZEPAM [Suspect]
     Active Substance: CLONAZEPAM
     Dosage: OVAL, WHITE TABLET WITH AN IMPRINT CODE OF TV/58 ON IT?ONE TABLET IN THE MORNING AND ONE AT NIGHT
     Route: 048

REACTIONS (2)
  - Chest discomfort [Unknown]
  - Anxiety [Unknown]
